FAERS Safety Report 21398448 (Version 1)
Quarter: 2022Q3

REPORT INFORMATION
  Report Type: Spontaneous
  Country: None (occurrence: PT)
  Receive Date: 20220930
  Receipt Date: 20220930
  Transmission Date: 20221027
  Serious: Yes (Other)
  Sender: FDA-Public Use
  Company Number: PT-Canton Laboratories, LLC-2133371

PATIENT
  Age: 35 Year
  Sex: Male

DRUGS (2)
  1. NAPROSYN [Suspect]
     Active Substance: NAPROXEN
     Indication: Odynophagia
     Dates: start: 201907
  2. AMOXICILLIN [Suspect]
     Active Substance: AMOXICILLIN
     Dates: start: 201907

REACTIONS (5)
  - Dizziness [Recovered/Resolved]
  - Vomiting [Recovered/Resolved]
  - Sneezing [Recovered/Resolved]
  - Syncope [Recovered/Resolved]
  - Hypotension [Recovered/Resolved]

NARRATIVE: CASE EVENT DATE: 20190701
